FAERS Safety Report 15033070 (Version 1)
Quarter: 2018Q3

REPORT INFORMATION
  Report Type: Spontaneous
  Country: US (occurrence: US)
  Receive Date: 20180619
  Receipt Date: 20180619
  Transmission Date: 20181010
  Serious: No
  Sender: FDA-Public Use
  Company Number: US-AVADEL SPECIALTY PHARMACEUTICALS, LLC-2018AVA00045

PATIENT
  Age: 72 Year
  Sex: Male
  Weight: 88.44 kg

DRUGS (4)
  1. TRAZODONE [Concomitant]
     Active Substance: TRAZODONE HYDROCHLORIDE
     Dosage: 300 MG, 1X/DAY AT BEDTIME
  2. NOCTIVA [Suspect]
     Active Substance: DESMOPRESSIN ACETATE
     Indication: NOCTURIA
     Dosage: 1.66 ?G, 1X/DAY (1 SPRAY IN EACH NOSTRIL ABOUT AN HOUR BEFORE BED)
     Route: 045
     Dates: start: 201803
  3. UNSPECIFIED VITAMINS [Concomitant]
     Active Substance: VITAMINS
  4. CLONAZEPAM. [Concomitant]
     Active Substance: CLONAZEPAM
     Dosage: 0.25 MG, 1X/DAY BEFORE BEDTIME

REACTIONS (4)
  - Drug administration error [Not Recovered/Not Resolved]
  - Intentional product use issue [None]
  - Nightmare [Recovering/Resolving]
  - Incorrect dose administered [Not Recovered/Not Resolved]

NARRATIVE: CASE EVENT DATE: 201803
